FAERS Safety Report 10083824 (Version 2)
Quarter: 2014Q3

REPORT INFORMATION
  Report Type: Spontaneous
  Country: FR (occurrence: None)
  Receive Date: 20140415
  Receipt Date: 20140715
  Transmission Date: 20150326
  Serious: Yes (Hospitalization)
  Sender: FDA-Public Use
  Company Number: AUR-APL-2014-04221

PATIENT
  Age: 77 Year
  Sex: Female

DRUGS (4)
  1. AXELER [Suspect]
     Active Substance: AMLODIPINE BESYLATE\OLMESARTAN MEDOXOMIL
     Indication: HYPERTENSION
     Route: 048
     Dates: end: 20140303
  2. SIMVASTATIN (SIMVASTATIN) [Concomitant]
     Active Substance: SIMVASTATIN
  3. BISOPROLOL [Suspect]
     Active Substance: BISOPROLOL
     Indication: HYPERTENSION
     Route: 048
     Dates: end: 20140304
  4. METFORMIN [Concomitant]
     Active Substance: METFORMIN HYDROCHLORIDE

REACTIONS (10)
  - Hot flush [None]
  - Malaise [None]
  - Vomiting [None]
  - Dizziness [None]
  - Headache [None]
  - Angina pectoris [None]
  - Hypertension [None]
  - Phaeochromocytoma [None]
  - Atrial fibrillation [None]
  - Neck pain [None]

NARRATIVE: CASE EVENT DATE: 201312
